FAERS Safety Report 8800828 (Version 3)
Quarter: 2012Q4

REPORT INFORMATION
  Report Type: 
  Country: US (occurrence: US)
  Receive Date: 20120921
  Receipt Date: 20121206
  Transmission Date: 20130627
  Serious: Yes (Death)
  Sender: FDA-Public Use
  Company Number: US-PFIZER INC-2012230868

PATIENT
  Age: 70 Year
  Sex: Male

DRUGS (5)
  1. REVATIO [Suspect]
     Indication: PRIMARY PULMONARY HYPERTENSION
     Dosage: 20 mg, 3x/day
     Dates: start: 20110215
  2. PRILOSEC [Concomitant]
     Dosage: 20 mg, 1x/day
     Route: 048
  3. NEXIUM [Concomitant]
     Dosage: 40 mg, one at bedtime
     Route: 048
  4. PREDNISONE [Concomitant]
     Dosage: 10 mg, 1x/day
     Route: 048
  5. SPIRONOLACTONE [Concomitant]
     Dosage: 50 mg, 2x/day
     Route: 048

REACTIONS (1)
  - Death [Fatal]
